FAERS Safety Report 10016622 (Version 1)
Quarter: 2014Q1

REPORT INFORMATION
  Report Type: Spontaneous
  Country: US (occurrence: US)
  Receive Date: 20140317
  Receipt Date: 20140317
  Transmission Date: 20141002
  Serious: No
  Sender: FDA-Public Use
  Company Number: US-ALLERGAN-1300269US

PATIENT
  Age: 65 Year
  Sex: Female

DRUGS (1)
  1. FML FORTE [Suspect]
     Indication: EYE IRRITATION
     Dosage: 1 GTT OU, TID
     Route: 047
     Dates: start: 20130103, end: 20130106

REACTIONS (5)
  - Scleral hyperaemia [Recovering/Resolving]
  - Lacrimation increased [Recovering/Resolving]
  - Foreign body sensation in eyes [Recovering/Resolving]
  - Eye pain [Recovering/Resolving]
  - Eye irritation [Recovering/Resolving]
